FAERS Safety Report 7475580-2 (Version None)
Quarter: 2011Q2

REPORT INFORMATION
  Report Type: 
  Country: None (occurrence: None)
  Receive Date: 20110512
  Receipt Date: 20110504
  Transmission Date: 20111010
  Serious: Yes (Hospitalization, Other)
  Sender: FDA-Public Use
  Company Number: US-JNJFOC-20110411205

PATIENT
  Age: 21 Year
  Sex: Male

DRUGS (3)
  1. HALOPERIDOL [Concomitant]
     Indication: PRODUCT USED FOR UNKNOWN INDICATION
     Route: 065
  2. ULTRAM [Suspect]
     Indication: PRODUCT USED FOR UNKNOWN INDICATION
     Route: 065
  3. NARCAN [Suspect]
     Indication: PRODUCT USED FOR UNKNOWN INDICATION
     Route: 065

REACTIONS (7)
  - CONVULSION [None]
  - SINUS TACHYCARDIA [None]
  - WITHDRAWAL SYNDROME [None]
  - OVERDOSE [None]
  - SOMNOLENCE [None]
  - ASPIRATION [None]
  - OXYGEN SATURATION DECREASED [None]
